FAERS Safety Report 10419897 (Version 1)
Quarter: 2014Q3

REPORT INFORMATION
  Report Type: Spontaneous
  Country: GB (occurrence: GB)
  Receive Date: 20140829
  Receipt Date: 20140829
  Transmission Date: 20150326
  Serious: Yes (Life-Threatening)
  Sender: FDA-Public Use
  Company Number: GB-TEVA-504078ISR

PATIENT
  Age: 55 Year
  Sex: Male
  Weight: 83 kg

DRUGS (4)
  1. RAMIPRIL. [Concomitant]
     Active Substance: RAMIPRIL
  2. ATORVASTATIN [Suspect]
     Active Substance: ATORVASTATIN
     Indication: HYPERCHOLESTEROLAEMIA
     Route: 048
     Dates: start: 20110218, end: 20140422
  3. ATENOLOL. [Concomitant]
     Active Substance: ATENOLOL
  4. VENLALIC XL [Concomitant]
     Active Substance: VENLAFAXINE HYDROCHLORIDE

REACTIONS (3)
  - Pain in extremity [Unknown]
  - Confusional state [Unknown]
  - Depression suicidal [Recovered/Resolved with Sequelae]

NARRATIVE: CASE EVENT DATE: 20140205
